FAERS Safety Report 12667705 (Version 1)
Quarter: 2016Q3

REPORT INFORMATION
  Report Type: Spontaneous
  Country: FR (occurrence: FR)
  Receive Date: 20160819
  Receipt Date: 20160819
  Transmission Date: 20161109
  Serious: Yes (Other)
  Sender: FDA-Public Use
  Company Number: FR-IMPAX LABORATORIES, INC-2016-IPXL-00892

PATIENT
  Age: 80 Year

DRUGS (8)
  1. 5 FU [Concomitant]
     Active Substance: FLUOROURACIL
     Indication: COLON CANCER STAGE III
     Dosage: 400 MG/M^2, OVER 90 MIN
     Route: 040
     Dates: start: 200004
  2. ONDANSETRAN [Concomitant]
     Active Substance: ONDANSETRON HYDROCHLORIDE
     Indication: ANTIEMETIC SUPPORTIVE CARE
     Dosage: UNK
     Route: 065
     Dates: start: 200004
  3. METOCLOPRAMIDE. [Concomitant]
     Active Substance: METOCLOPRAMIDE
     Indication: ANTIEMETIC SUPPORTIVE CARE
     Dosage: UNK
     Route: 065
     Dates: start: 200004
  4. ATROPINE. [Concomitant]
     Active Substance: ATROPINE
     Indication: ANTICHOLINERGIC SYNDROME
     Dosage: UNK
     Route: 065
     Dates: start: 200004
  5. IRINOTECAN [Concomitant]
     Active Substance: IRINOTECAN
     Indication: COLON CANCER STAGE III
     Dosage: 180 MG/M^2,  OVER 90 MIN
     Route: 040
     Dates: start: 200004
  6. LEUCOVORIN CALCIUM. [Suspect]
     Active Substance: LEUCOVORIN CALCIUM
     Indication: COLON CANCER STAGE III
     Dosage: 200 MG/M^2, OVER 120 MIN FOR DAY 1
     Route: 040
     Dates: start: 200004
  7. 5 FU [Concomitant]
     Active Substance: FLUOROURACIL
     Dosage: 2400 MG/M^2, OVER 2 DAYS
     Route: 040
     Dates: start: 200004
  8. PREDNISONE. [Concomitant]
     Active Substance: PREDNISONE
     Indication: ANTIEMETIC SUPPORTIVE CARE
     Dosage: UNK
     Route: 065
     Dates: start: 200004

REACTIONS (2)
  - Anaphylactic shock [Recovered/Resolved]
  - Rash [Recovered/Resolved]

NARRATIVE: CASE EVENT DATE: 200004
